FAERS Safety Report 24778920 (Version 1)
Quarter: 2024Q4

REPORT INFORMATION
  Report Type: Spontaneous
  Country: US (occurrence: None)
  Receive Date: 20241226
  Receipt Date: 20241226
  Transmission Date: 20250114
  Serious: Yes (Disabling, Other)
  Sender: Public
  Company Number: None

PATIENT
  Age: 22 Year
  Sex: Female
  Weight: 80 kg

DRUGS (3)
  1. SERTRALINE [Suspect]
     Active Substance: SERTRALINE HYDROCHLORIDE
  2. ESCITALOPRAM [Suspect]
     Active Substance: ESCITALOPRAM OXALATE
  3. RISPERIDONE [Suspect]
     Active Substance: RISPERIDONE

REACTIONS (7)
  - Cognitive disorder [None]
  - Emotional disorder [None]
  - Sexual dysfunction [None]
  - Loss of libido [None]
  - Memory impairment [None]
  - Anhedonia [None]
  - Brain fog [None]

NARRATIVE: CASE EVENT DATE: 20210601
